FAERS Safety Report 6842808-9 (Version None)
Quarter: 2010Q3

REPORT INFORMATION
  Report Type: 
  Country: None (occurrence: None)
  Receive Date: 20100714
  Receipt Date: 20070805
  Transmission Date: 20110219
  Serious: Yes (Other)
  Sender: FDA-Public Use
  Company Number: US-PFIZER INC-2007066151

PATIENT
  Sex: Female
  Weight: 70.454 kg

DRUGS (2)
  1. CHANTIX [Suspect]
     Indication: SMOKING CESSATION THERAPY
     Dates: start: 20070727
  2. HERBAL PREPARATION [Concomitant]

REACTIONS (9)
  - APATHY [None]
  - DECREASED APPETITE [None]
  - DEPRESSION [None]
  - ERUCTATION [None]
  - FATIGUE [None]
  - IRRITABILITY [None]
  - MALAISE [None]
  - NAUSEA [None]
  - SUICIDAL IDEATION [None]
